FAERS Safety Report 25925355 (Version 1)
Quarter: 2025Q4

REPORT INFORMATION
  Report Type: Report from Study
  Country: CA (occurrence: CA)
  Receive Date: 20251015
  Receipt Date: 20251015
  Transmission Date: 20260117
  Serious: Yes (Hospitalization, Other)
  Sender: ABBVIE
  Company Number: CA-ABBVIE-6499651

PATIENT
  Age: 77 Year
  Sex: Male

DRUGS (1)
  1. SKYRIZI [Suspect]
     Active Substance: RISANKIZUMAB-RZAA
     Indication: Crohn^s disease
     Dosage: SOLUTION FOR INJECTION IN PRE-FILLED INJECTOR
     Route: 058

REACTIONS (14)
  - Rectal haemorrhage [Unknown]
  - Inflammation [Unknown]
  - Microcytic anaemia [Unknown]
  - Iron deficiency anaemia [Unknown]
  - Pyrexia [Unknown]
  - Haematochezia [Recovering/Resolving]
  - Weight decreased [Unknown]
  - Haemoglobin abnormal [Unknown]
  - Small intestine ulcer [Unknown]
  - Crohn^s disease [Unknown]
  - Rash maculo-papular [Unknown]
  - Drug ineffective [Unknown]
  - Faecal calprotectin abnormal [Unknown]
  - Gastrointestinal haemorrhage [Unknown]

NARRATIVE: CASE EVENT DATE: 20250101
